FAERS Safety Report 7137687-9 (Version None)
Quarter: 2010Q4

REPORT INFORMATION
  Report Type: 
  Country: None (occurrence: None)
  Receive Date: 20101206
  Receipt Date: 20101125
  Transmission Date: 20110411
  Serious: Yes (Hospitalization)
  Sender: FDA-Public Use
  Company Number: PT-JNJFOC-20101200364

PATIENT
  Age: 61 Year
  Sex: Male

DRUGS (8)
  1. REMICADE [Suspect]
     Indication: PSORIATIC ARTHROPATHY
     Dosage: WEEK 0
     Route: 042
  2. REMICADE [Suspect]
     Indication: PSORIASIS
     Dosage: WEEK 0
     Route: 042
  3. METHOTREXATE [Concomitant]
     Indication: PSORIATIC ARTHROPATHY
  4. METHOTREXATE [Concomitant]
     Indication: PSORIASIS
  5. ACARBOSE [Concomitant]
  6. ROSUVASTATIN [Concomitant]
  7. MONTELUKAST [Concomitant]
  8. CORTICOSTEROIDS [Concomitant]
     Indication: ARTHROPATHY
     Route: 048

REACTIONS (5)
  - ARTHRALGIA [None]
  - CHOLELITHIASIS [None]
  - PANCREATITIS ACUTE [None]
  - PSORIASIS [None]
  - RESPIRATORY TRACT INFECTION [None]
